FAERS Safety Report 20330001 (Version 1)
Quarter: 2022Q1

REPORT INFORMATION
  Report Type: Spontaneous
  Country: US (occurrence: US)
  Receive Date: 20220113
  Receipt Date: 20220113
  Transmission Date: 20220424
  Serious: Yes (Other)
  Sender: FDA-Public Use
  Company Number: US-CELLTRION INC.-2022US000075

PATIENT

DRUGS (2)
  1. TRUXIMA [Suspect]
     Active Substance: RITUXIMAB-ABBS
     Indication: Cryoglobulinaemia
     Dosage: UNK
  2. TRUXIMA [Suspect]
     Active Substance: RITUXIMAB-ABBS
     Dosage: SERVICE DATE OF 23 DEC 2021 FOR TRUXIMA 375 MG PER M2 ONCE PER WEEK

REACTIONS (2)
  - Cryoglobulinaemia [Unknown]
  - Off label use [Unknown]
